FAERS Safety Report 23884581 (Version 1)
Quarter: 2024Q2

REPORT INFORMATION
  Report Type: Spontaneous
  Country: CN (occurrence: CN)
  Receive Date: 20240522
  Receipt Date: 20240522
  Transmission Date: 20240715
  Serious: Yes (Life-Threatening, Hospitalization, Other)
  Sender: FDA-Public Use
  Company Number: CN-BAYER-2024A073931

PATIENT
  Age: 83 Year
  Sex: Male

DRUGS (3)
  1. GLUCOBAY [Interacting]
     Active Substance: ACARBOSE
     Indication: Type 2 diabetes mellitus
     Dosage: 50 MG, TID
     Route: 048
     Dates: start: 20240501, end: 20240508
  2. REPAGLINIDE [Interacting]
     Active Substance: REPAGLINIDE
     Indication: Type 2 diabetes mellitus
     Dosage: 1 MG, TID
     Route: 048
     Dates: start: 20240501, end: 20240508
  3. METFORMIN HYDROCHLORIDE [Interacting]
     Active Substance: METFORMIN HYDROCHLORIDE
     Indication: Type 2 diabetes mellitus
     Dosage: 0.5 G, TID
     Route: 048
     Dates: start: 20240501, end: 20240508

REACTIONS (6)
  - Hypoglycaemic coma [Recovering/Resolving]
  - Depressed level of consciousness [Recovering/Resolving]
  - Unresponsive to stimuli [Recovering/Resolving]
  - Hyperhidrosis [None]
  - Blood pressure increased [Recovering/Resolving]
  - Respiratory rate increased [None]

NARRATIVE: CASE EVENT DATE: 20240508
